FAERS Safety Report 5579949-2 (Version None)
Quarter: 2008Q1

REPORT INFORMATION
  Report Type: 
  Country: None (occurrence: None)
  Receive Date: 20080103
  Receipt Date: 20071226
  Transmission Date: 20080703
  Serious: Yes (Hospitalization, Other)
  Sender: FDA-Public Use
  Company Number: PHBS2007JP21514

PATIENT
  Age: 1 Year
  Sex: Female

DRUGS (1)
  1. ZADITEN [Suspect]
     Indication: URTICARIA
     Dates: start: 20071221

REACTIONS (1)
  - LOSS OF CONSCIOUSNESS [None]
